FAERS Safety Report 17902021 (Version 1)
Quarter: 2020Q2

REPORT INFORMATION
  Report Type: Report from Study
  Country: BR (occurrence: BR)
  Receive Date: 20200616
  Receipt Date: 20200616
  Transmission Date: 20200714
  Serious: Yes (Life-Threatening, Hospitalization, Other)
  Sender: FDA-Public Use
  Company Number: NVSC2020BR167694

PATIENT
  Age: 63 Year
  Sex: Female

DRUGS (2)
  1. LANTUS [Concomitant]
     Active Substance: INSULIN GLARGINE
     Indication: PRODUCT USED FOR UNKNOWN INDICATION
     Dosage: BY MORNING
     Route: 065
  2. GALVUS MET [Suspect]
     Active Substance: METFORMIN HYDROCHLORIDE\VILDAGLIPTIN
     Indication: PRODUCT USED FOR UNKNOWN INDICATION
     Dosage: UNK, QD, CLOSE TO THE LUNCH
     Route: 048

REACTIONS (8)
  - Abdominal pain upper [Unknown]
  - Myocardial oedema [Unknown]
  - Malaise [Unknown]
  - Weight decreased [Unknown]
  - Chest pain [Unknown]
  - Nosocomial infection [Unknown]
  - Infarction [Unknown]
  - Back pain [Unknown]

NARRATIVE: CASE EVENT DATE: 20190916
